FAERS Safety Report 6569121-1 (Version None)
Quarter: 2010Q1

REPORT INFORMATION
  Report Type: 
  Country: None (occurrence: None)
  Receive Date: 20100203
  Receipt Date: 20100128
  Transmission Date: 20100710
  Serious: No
  Sender: FDA-Public Use
  Company Number: US-B.I. PHARMACEUTICALS,INC./RIDGEFIELD-2010-BP-01055BP

PATIENT
  Sex: Male

DRUGS (5)
  1. MIRAPEX [Suspect]
     Indication: PARKINSON'S DISEASE
     Dates: start: 20041227, end: 20090713
  2. LIPITOR [Concomitant]
     Dosage: 10 MG
  3. COQ10 [Concomitant]
     Dosage: 1200 MG
  4. M.V.I. [Concomitant]
  5. VITAMIN C [Concomitant]
     Dosage: 500 MG

REACTIONS (2)
  - PATHOLOGICAL GAMBLING [None]
  - SLEEP DISORDER [None]
